FAERS Safety Report 23268175 (Version 1)
Quarter: 2023Q4

REPORT INFORMATION
  Report Type: Spontaneous
  Country: CA (occurrence: CA)
  Receive Date: 20231206
  Receipt Date: 20231206
  Transmission Date: 20240110
  Serious: Yes (Other)
  Sender: FDA-Public Use
  Company Number: CA-002147023-NVSC2023CA254378

PATIENT
  Age: 61 Year
  Sex: Female
  Weight: 80.02 kg

DRUGS (4)
  1. IMATINIB [Suspect]
     Active Substance: IMATINIB
     Indication: Philadelphia chromosome positive
     Dosage: 400 MG, QD
     Route: 065
     Dates: start: 201905, end: 202105
  2. IMATINIB [Suspect]
     Active Substance: IMATINIB
     Indication: Chronic myeloid leukaemia
  3. BOSULIF [Suspect]
     Active Substance: BOSUTINIB MONOHYDRATE
     Indication: Philadelphia chromosome positive
     Dosage: 400 MG, QD
     Route: 065
     Dates: start: 202106
  4. BOSULIF [Suspect]
     Active Substance: BOSUTINIB MONOHYDRATE
     Indication: Chronic myeloid leukaemia

REACTIONS (5)
  - Heart rate decreased [Unknown]
  - Arthralgia [Unknown]
  - Diarrhoea [Unknown]
  - Fatigue [Unknown]
  - Hypertension [Unknown]
